FAERS Safety Report 5154060-3 (Version None)
Quarter: 2006Q4

REPORT INFORMATION
  Report Type: 
  Country: None (occurrence: None)
  Receive Date: 20061116
  Receipt Date: 20061116
  Transmission Date: 20070319
  Serious: Yes (Other)
  Sender: FDA-Public Use
  Company Number: None

PATIENT
  Age: 43 Year
  Sex: Female
  Weight: 68.4932 kg

DRUGS (2)
  1. LEVAQUIN [Suspect]
     Indication: PNEUMONIA
     Dosage: ONCE DAILY PO
     Route: 048
     Dates: start: 20061106, end: 20061113
  2. METHYLPREDNISONE - MED-PACK- [Concomitant]

REACTIONS (5)
  - ARTHRALGIA [None]
  - DYSSTASIA [None]
  - GAIT DISTURBANCE [None]
  - MUSCULAR WEAKNESS [None]
  - PAIN [None]
